FAERS Safety Report 5600036-9 (Version None)
Quarter: 2008Q1

REPORT INFORMATION
  Report Type: 
  Country: None (occurrence: None)
  Receive Date: 20080123
  Receipt Date: 20080121
  Transmission Date: 20080703
  Serious: Yes (Death)
  Sender: FDA-Public Use
  Company Number: JP-ASTRAZENECA-2007AP08030

PATIENT
  Age: 29227 Day
  Sex: Male
  Weight: 61 kg

DRUGS (6)
  1. OMEPRAL [Suspect]
     Indication: REFLUX OESOPHAGITIS
     Route: 048
     Dates: start: 20071120, end: 20071210
  2. HYPEN [Suspect]
     Indication: POSTOPERATIVE ANALGESIA
     Route: 048
     Dates: start: 20071122, end: 20071210
  3. ENALAPRIL MALEATE [Concomitant]
     Indication: HYPERTENSION
     Route: 048
     Dates: start: 20070831, end: 20071212
  4. CONIEL [Concomitant]
     Indication: HYPERTENSION
     Route: 048
     Dates: start: 20070831, end: 20071212
  5. SIMVASTATIN [Concomitant]
     Indication: HYPERLIPIDAEMIA
     Route: 048
     Dates: start: 20070831, end: 20071212
  6. POLLAKISU [Concomitant]
     Indication: POLLAKIURIA
     Route: 048
     Dates: start: 20070831, end: 20071212

REACTIONS (1)
  - STEVENS-JOHNSON SYNDROME [None]
